FAERS Safety Report 9111237 (Version 1)
Quarter: 2013Q1

REPORT INFORMATION
  Report Type: Spontaneous
  Country: US (occurrence: US)
  Receive Date: 20130219
  Receipt Date: 20130219
  Transmission Date: 20140127
  Serious: No
  Sender: FDA-Public Use
  Company Number: US-BRISTOL-MYERS SQUIBB COMPANY-16607012

PATIENT
  Age: 58 Year
  Sex: Female
  Weight: 68.03 kg

DRUGS (6)
  1. ABATACEPT SUBQ INJECTION 125MG/ML [Suspect]
     Indication: RHEUMATOID ARTHRITIS
     Dosage: LOADING DOSE:11MAY12?PRESCRIPTION:320034765?1 DAY EACH WEEK
     Route: 058
     Dates: start: 20120512
  2. DELTASONE [Concomitant]
     Indication: INFLAMMATION
     Dosage: TAB
     Route: 048
  3. VICODIN [Concomitant]
     Dosage: TABS?1-2TABS?PERDAY
     Route: 048
  4. MIRAPEX [Concomitant]
     Dosage: 1DF=0.25MG?TAB
     Route: 048
  5. ECOTRIN [Concomitant]
     Dosage: TAB?LOW STRENGTH
     Route: 048
  6. FOSAMAX [Concomitant]
     Dosage: TAB
     Route: 048

REACTIONS (1)
  - Incorrect storage of drug [Unknown]
